FAERS Safety Report 8261863-5 (Version None)
Quarter: 2012Q2

REPORT INFORMATION
  Report Type: 
  Country: None (occurrence: None)
  Receive Date: 20120402
  Receipt Date: 20120323
  Transmission Date: 20120825
  Serious: Yes (Hospitalization)
  Sender: FDA-Public Use
  Company Number: 2012SP016677

PATIENT
  Age: 39 Year
  Sex: Female

DRUGS (2)
  1. REMERON [Suspect]
     Indication: PRODUCT USED FOR UNKNOWN INDICATION
     Dosage: 30 MG, ONCE, PO
     Route: 048
     Dates: start: 20110816, end: 20110816
  2. SEROQUEL [Suspect]
     Indication: PRODUCT USED FOR UNKNOWN INDICATION
     Dosage: 30 DF, ONCE, PO
     Route: 048
     Dates: start: 20110816, end: 20110816

REACTIONS (10)
  - HALLUCINATION [None]
  - VOMITING [None]
  - MULTIPLE DRUG OVERDOSE INTENTIONAL [None]
  - SOMNOLENCE [None]
  - TACHYCARDIA [None]
  - POISONING [None]
  - COMA SCALE ABNORMAL [None]
  - SUICIDE ATTEMPT [None]
  - CONDUCTION DISORDER [None]
  - PSYCHOMOTOR HYPERACTIVITY [None]
